FAERS Safety Report 7620517-6 (Version None)
Quarter: 2011Q3

REPORT INFORMATION
  Report Type: 
  Country: None (occurrence: None)
  Receive Date: 20110719
  Receipt Date: 20110712
  Transmission Date: 20111222
  Serious: Yes (Hospitalization)
  Sender: FDA-Public Use
  Company Number: GB-ROCHE-603907

PATIENT
  Sex: Female
  Weight: 52 kg

DRUGS (4)
  1. BEVACIZUMAB [Suspect]
     Dosage: MOST RECENT DOSE DATE: 31 JULY 2008. TREATMENT WAS STOPPED, THIRD CYCLE
     Route: 042
     Dates: start: 20080619
  2. CISPLATIN [Suspect]
     Dosage: MOST RECENT DOSE DATE: 01 AUGUST 2008. THIRD CYCLE
     Route: 042
     Dates: start: 20080619
  3. CAPECITABINE [Suspect]
     Dosage: MOST RECENT DOSE DATE: 22 AUGUST 2008. THIRD CYCLE.
     Route: 048
     Dates: start: 20080619
  4. EPIRUBICIN [Suspect]
     Dosage: MOST RECENT DOSE DATE: 01 AUGUST 2008. THIRD CYCLE
     Route: 042
     Dates: start: 20080619

REACTIONS (2)
  - ATRIAL FIBRILLATION [None]
  - CEREBRAL INFARCTION [None]
